FAERS Safety Report 12374496 (Version 1)
Quarter: 2016Q2

REPORT INFORMATION
  Report Type: Report from Study
  Country: US (occurrence: US)
  Receive Date: 20160517
  Receipt Date: 20160517
  Transmission Date: 20160815
  Serious: Yes (Hospitalization)
  Sender: FDA-Public Use
  Company Number: US-ROCHE-1759185

PATIENT
  Age: 57 Year
  Sex: Male

DRUGS (4)
  1. XELODA [Suspect]
     Active Substance: CAPECITABINE
     Indication: GASTRIC CANCER
     Dosage: 8 PILLS/DAY
     Route: 065
  2. 5-FLUOROURACIL [Concomitant]
     Active Substance: FLUOROURACIL
  3. HERCEPTIN [Suspect]
     Active Substance: TRASTUZUMAB
     Indication: GASTRIC CANCER
     Route: 065
  4. CISPLATIN. [Concomitant]
     Active Substance: CISPLATIN

REACTIONS (9)
  - Gastric ulcer [Unknown]
  - Abdominal discomfort [Unknown]
  - Mouth ulceration [Unknown]
  - Burning sensation [Unknown]
  - Cognitive disorder [Unknown]
  - Therapeutic response decreased [Unknown]
  - Dysphagia [Unknown]
  - Fatigue [Unknown]
  - Feeling abnormal [Unknown]
